FAERS Safety Report 15540523 (Version 1)
Quarter: 2018Q4

REPORT INFORMATION
  Report Type: Report from Study
  Country: JP (occurrence: JP)
  Receive Date: 20181023
  Receipt Date: 20181023
  Transmission Date: 20190205
  Serious: Yes (Other)
  Sender: FDA-Public Use
  Company Number: JP-ACCORD-073573

PATIENT
  Age: 37 Year
  Sex: Female

DRUGS (2)
  1. TACROLIMUS. [Suspect]
     Active Substance: TACROLIMUS
     Indication: GRAFT VERSUS HOST DISEASE
     Dosage: 1.4 MG
  2. METHOTREXATE. [Suspect]
     Active Substance: METHOTREXATE
     Indication: GRAFT VERSUS HOST DISEASE
     Dosage: 10 MG/M2 ON DAY 1 AND 7 MG/M2 ON DAYS 3 AND 6)

REACTIONS (2)
  - Organising pneumonia [Unknown]
  - Cytomegalovirus infection [Unknown]
